FAERS Safety Report 6657592-1 (Version None)
Quarter: 2010Q1

REPORT INFORMATION
  Report Type: 
  Country: None (occurrence: None)
  Receive Date: 20100330
  Receipt Date: 20100324
  Transmission Date: 20100710
  Serious: Yes (Hospitalization, Other)
  Sender: FDA-Public Use
  Company Number: US-BAYER-201013782NA

PATIENT
  Age: 23 Year
  Sex: Female
  Weight: 57 kg

DRUGS (1)
  1. MIRENA [Suspect]
     Indication: CONTRACEPTION
     Dosage: FREQUENCY: CONTINUOUS
     Route: 015
     Dates: start: 20080619, end: 20100127

REACTIONS (5)
  - AMENORRHOEA [None]
  - BETA HAEMOLYTIC STREPTOCOCCAL INFECTION [None]
  - CONVULSION [None]
  - HYPERTENSION [None]
  - SEPTIC SHOCK [None]
